FAERS Safety Report 17238031 (Version 1)
Quarter: 2020Q1

REPORT INFORMATION
  Report Type: Spontaneous
  Country: US (occurrence: US)
  Receive Date: 20200106
  Receipt Date: 20200106
  Transmission Date: 20200409
  Serious: No
  Sender: FDA-Public Use
  Company Number: US-PACIRA-201900113

PATIENT
  Age: 67 Year
  Sex: Female
  Weight: 80.3 kg

DRUGS (2)
  1. EXPAREL [Suspect]
     Active Substance: BUPIVACAINE
     Indication: NERVE BLOCK
     Dosage: 10 ML OF EXPAREL WITH 20 ML OF BUPIVACAINE HCL 0.25%
     Dates: start: 20180531, end: 20180531
  2. BUPIVACAINE. [Suspect]
     Active Substance: BUPIVACAINE
     Indication: NERVE BLOCK
     Dosage: 20 ML OF BUPIVACAINE HCL 1.25% WITH 10 ML OF EXPAREL
     Dates: start: 20180531, end: 20180531

REACTIONS (4)
  - Diaphragmatic disorder [Recovering/Resolving]
  - Atelectasis [Unknown]
  - Dyspnoea [Recovering/Resolving]
  - Sensory loss [Recovered/Resolved]

NARRATIVE: CASE EVENT DATE: 20180531
